FAERS Safety Report 8012605-X (Version None)
Quarter: 2011Q4

REPORT INFORMATION
  Report Type: 
  Country: None (occurrence: None)
  Receive Date: 20111229
  Receipt Date: 20111220
  Transmission Date: 20120403
  Serious: Yes (Other)
  Sender: FDA-Public Use
  Company Number: US-BAYER-2011-123103

PATIENT
  Age: 27 Year
  Weight: 61.224 kg

DRUGS (10)
  1. YASMIN [Suspect]
     Indication: CONTRACEPTION
     Dosage: UNK
     Dates: start: 20010101, end: 20090101
  2. VITASPIRE [Concomitant]
  3. NOVOLOG [Concomitant]
     Indication: DIABETES MELLITUS
     Dosage: UNK
     Dates: start: 20030101
  4. CYMBALTA [Concomitant]
  5. NEXIUM [Concomitant]
     Indication: GASTROOESOPHAGEAL REFLUX DISEASE
     Dosage: 40 MG, UNK
     Dates: start: 20090101
  6. DROSPIRENONE AND ETHINYL ESTRADIOL [Suspect]
     Indication: CONTRACEPTION
     Dosage: UNK
     Dates: start: 20010101, end: 20090101
  7. MULTI-VITAMINS [Concomitant]
     Dosage: UNK
     Dates: start: 20090101
  8. MOTRIN [Concomitant]
     Indication: PAIN
     Dosage: 1 TABLET EVERY 6-8 HOURS
  9. ACETAMINOPHEN [Concomitant]
     Dosage: 1 TABLET EVERY 6-8 HOURS
  10. ZOLOFT [Concomitant]
     Indication: DEPRESSION
     Dosage: UNK
     Dates: start: 20100101

REACTIONS (7)
  - BILIARY DYSKINESIA [None]
  - CONSTIPATION [None]
  - ABDOMINAL DISTENSION [None]
  - CHOLECYSTITIS CHRONIC [None]
  - CHEST PAIN [None]
  - FLATULENCE [None]
  - NAUSEA [None]
